FAERS Safety Report 14800115 (Version 3)
Quarter: 2018Q3

REPORT INFORMATION
  Report Type: Report from Study
  Country: US (occurrence: US)
  Receive Date: 20180424
  Receipt Date: 20180928
  Transmission Date: 20181010
  Serious: Yes (Other)
  Sender: FDA-Public Use
  Company Number: US-JAZZ-2018-US-005496

PATIENT
  Sex: Male

DRUGS (22)
  1. GABAPENTIN. [Concomitant]
     Active Substance: GABAPENTIN
  2. LISINOPRIL. [Concomitant]
     Active Substance: LISINOPRIL
  3. PRAMIPEXOLE. [Concomitant]
     Active Substance: PRAMIPEXOLE
  4. VITAMIN B12 [Concomitant]
     Active Substance: CYANOCOBALAMIN
  5. ESOMEPRAZOLE MAGNESIUM. [Concomitant]
     Active Substance: ESOMEPRAZOLE MAGNESIUM
  6. XYREM [Suspect]
     Active Substance: SODIUM OXYBATE
     Indication: NARCOLEPSY
     Dosage: 2.25 G, BID
     Route: 048
     Dates: start: 201803, end: 2018
  7. SALBUTAMOL [Concomitant]
     Active Substance: ALBUTEROL
  8. ASCORBIC ACID. [Concomitant]
     Active Substance: ASCORBIC ACID
  9. MODAFINIL. [Concomitant]
     Active Substance: MODAFINIL
  10. ASPERCREME WITH LIDOCAINE [Concomitant]
     Active Substance: LIDOCAINE
  11. LIDODERM [Concomitant]
     Active Substance: LIDOCAINE
  12. SYMBICORT [Concomitant]
     Active Substance: BUDESONIDE\FORMOTEROL FUMARATE DIHYDRATE
  13. MELOXICAM. [Concomitant]
     Active Substance: MELOXICAM
  14. ACETYLSALICYLIC ACID [Concomitant]
     Active Substance: ASPIRIN
  15. METOPROLOL TARTRATE. [Concomitant]
     Active Substance: METOPROLOL TARTRATE
  16. XYREM [Suspect]
     Active Substance: SODIUM OXYBATE
     Dosage: 3 G, BID
     Route: 048
     Dates: start: 20180417
  17. BACLOFEN. [Concomitant]
     Active Substance: BACLOFEN
  18. TAMSULOSIN HCL [Concomitant]
     Active Substance: TAMSULOSIN HYDROCHLORIDE
  19. ATORVASTATIN [Concomitant]
     Active Substance: ATORVASTATIN
  20. ECHINACEA PURPUREA [Concomitant]
     Active Substance: ECHINACEA PURPUREA
  21. BYSTOLIC [Concomitant]
     Active Substance: NEBIVOLOL HYDROCHLORIDE
  22. GLUCOSAMINE SULFATE [Concomitant]
     Active Substance: GLUCOSAMINE SULFATE

REACTIONS (4)
  - Dementia Alzheimer^s type [Not Recovered/Not Resolved]
  - Vertigo [Unknown]
  - Pain in extremity [Not Recovered/Not Resolved]
  - Weight decreased [Unknown]
